FAERS Safety Report 24903018 (Version 2)
Quarter: 2025Q1

REPORT INFORMATION
  Report Type: Spontaneous
  Country: FR (occurrence: FR)
  Receive Date: 20250130
  Receipt Date: 20250307
  Transmission Date: 20250408
  Serious: Yes (Other)
  Sender: ALIMERA
  Company Number: FR-ALIMERA SCIENCES INC.-FR-A16013-25-000035

PATIENT
  Sex: Female

DRUGS (1)
  1. ILUVIEN [Suspect]
     Active Substance: FLUOCINOLONE ACETONIDE
     Indication: Product used for unknown indication
     Dosage: 0.25 MICROGRAM, QD - UNKNOWN EYE
     Route: 031

REACTIONS (7)
  - Blindness [Unknown]
  - Optic nerve injury [Unknown]
  - Choroidal effusion [Unknown]
  - Hypotony of eye [Unknown]
  - Ocular hypertension [Unknown]
  - Medical device removal [Recovered/Resolved]
  - Trabeculectomy [Recovered/Resolved]
